FAERS Safety Report 8009996-2 (Version None)
Quarter: 2011Q4

REPORT INFORMATION
  Report Type: 
  Country: None (occurrence: None)
  Receive Date: 20111228
  Receipt Date: 20111214
  Transmission Date: 20120403
  Serious: Yes (Hospitalization)
  Sender: FDA-Public Use
  Company Number: US-ELI_LILLY_AND_COMPANY-US201112005112

PATIENT
  Sex: Female

DRUGS (16)
  1. PREDNISONE TAB [Concomitant]
     Dosage: 10 MG, QD
  2. ADVAIR DISKUS 100/50 [Concomitant]
     Dosage: 250/50 2 PUFFS DAILY
  3. CALCIUM CITRATE [Concomitant]
     Dosage: 5 MG, BID
  4. FLONASE [Concomitant]
     Dosage: UNK, BID
  5. VITAMIN D [Concomitant]
     Dosage: 2000 U, QD
  6. EFFEXOR [Concomitant]
     Dosage: 75 MG, BID
  7. LOVAZA [Concomitant]
     Dosage: 2 G, BID
  8. SIMVASTATIN [Concomitant]
     Dosage: 80 MG, QD
  9. FORTEO [Suspect]
     Indication: OSTEOPOROSIS
     Dosage: 20 UG, QD
  10. LEVOTHYROXINE SODIUM [Concomitant]
     Dosage: 50 UG, QD
  11. ACETAMINOPHEN AND HYDROCODONE BITARTRATE [Concomitant]
     Dosage: 4 TIMES DAILY AS NEEDED
  12. VENTOLIN                                /SCH/ [Concomitant]
     Dosage: 1 DF, PRN
  13. FORTEO [Suspect]
     Dosage: 20 UG, QD
     Dates: start: 20110601
  14. MIRALAX [Concomitant]
     Dosage: 17 G, PRN
  15. ATENOLOL [Concomitant]
     Dosage: 100 MG, QD
  16. CENTRUM SILVER [Concomitant]
     Dosage: UNK, QD

REACTIONS (5)
  - SPINAL FRACTURE [None]
  - NEPHROLITHIASIS [None]
  - CONDITION AGGRAVATED [None]
  - GENERAL PHYSICAL CONDITION ABNORMAL [None]
  - DISORIENTATION [None]
